FAERS Safety Report 7224175-4 (Version None)
Quarter: 2011Q1

REPORT INFORMATION
  Report Type: 
  Country: None (occurrence: None)
  Receive Date: 20110106
  Receipt Date: 20110106
  Transmission Date: 20110831
  Serious: Yes (Other)
  Sender: FDA-Public Use
  Company Number: None

PATIENT
  Sex: Female
  Weight: 65.7716 kg

DRUGS (4)
  1. DARVON [Suspect]
     Indication: PROCEDURAL PAIN
     Dosage: 1 PILL EVERY 4 HOURS PO
     Route: 048
     Dates: start: 20100915, end: 20100925
  2. DARVON [Suspect]
     Indication: GINGIVAL OPERATION
     Dosage: 1 PILL EVERY 4 HOURS PO
     Route: 048
     Dates: start: 20100915, end: 20100925
  3. DARVON [Suspect]
     Indication: PROCEDURAL PAIN
     Dosage: 1 PILL EVERY 4 HOURS PO
     Route: 048
     Dates: start: 20100706, end: 20100716
  4. DARVON [Suspect]
     Indication: GINGIVAL OPERATION
     Dosage: 1 PILL EVERY 4 HOURS PO
     Route: 048
     Dates: start: 20100706, end: 20100716

REACTIONS (5)
  - DIZZINESS [None]
  - SOMNOLENCE [None]
  - PALPITATIONS [None]
  - PRESYNCOPE [None]
  - BALANCE DISORDER [None]
